FAERS Safety Report 5071547-2 (Version None)
Quarter: 2006Q3

REPORT INFORMATION
  Report Type: 
  Country: None (occurrence: None)
  Receive Date: 20060803
  Receipt Date: 20060803
  Transmission Date: 20061208
  Serious: Yes (Hospitalization)
  Sender: FDA-Public Use
  Company Number: None

PATIENT
  Age: 60 Year
  Sex: Male
  Weight: 93.1 kg

DRUGS (2)
  1. GEMFIBROZIL [Suspect]
     Indication: BLOOD TRIGLYCERIDES
     Dosage: 600 MG PO BID
     Route: 048
     Dates: start: 20030314, end: 20060510
  2. SIMVASTATIN [Suspect]
     Indication: BLOOD CHOLESTEROL
     Dosage: 20 MG PO DAILY
     Route: 048
     Dates: start: 20060406, end: 20060510

REACTIONS (3)
  - ALANINE AMINOTRANSFERASE INCREASED [None]
  - ASPARTATE AMINOTRANSFERASE INCREASED [None]
  - FALL [None]
